FAERS Safety Report 6743256-2 (Version None)
Quarter: 2010Q2

REPORT INFORMATION
  Report Type: 
  Country: None (occurrence: None)
  Receive Date: 20100527
  Receipt Date: 20100520
  Transmission Date: 20101027
  Serious: Yes (Other)
  Sender: FDA-Public Use
  Company Number: FR-SANOFI-AVENTIS-2010SA020797

PATIENT
  Age: 63 Year
  Sex: Female
  Weight: 80.5 kg

DRUGS (4)
  1. ARAVA [Suspect]
     Indication: RHEUMATOID ARTHRITIS
     Route: 048
     Dates: start: 20080801, end: 20090801
  2. METHOTREXATE [Concomitant]
     Indication: RHEUMATOID ARTHRITIS
     Route: 030
     Dates: start: 20070701, end: 20080801
  3. METHOTREXATE [Concomitant]
     Route: 030
     Dates: start: 20090801
  4. CRESTOR [Concomitant]
     Route: 048
     Dates: start: 20080101, end: 20080801

REACTIONS (2)
  - ACNE [None]
  - BASAL CELL CARCINOMA [None]
